FAERS Safety Report 7743877-4 (Version None)
Quarter: 2011Q3

REPORT INFORMATION
  Report Type: 
  Country: None (occurrence: None)
  Receive Date: 20110912
  Receipt Date: 20110902
  Transmission Date: 20111222
  Serious: Yes (Death)
  Sender: FDA-Public Use
  Company Number: US-GLAXOSMITHKLINE-A0941614A

PATIENT
  Age: 23 Year
  Sex: Female
  Weight: 44.5 kg

DRUGS (10)
  1. ATIVAN [Concomitant]
  2. FLEXERIL [Concomitant]
     Dosage: 10MG TWICE PER DAY
  3. MORPHINE [Concomitant]
  4. COMPAZINE [Concomitant]
     Route: 048
  5. LACTULOSE [Concomitant]
  6. MS CONTIN [Concomitant]
  7. ZOFRAN [Concomitant]
     Route: 048
  8. PHENERGAN HCL [Concomitant]
  9. VOTRIENT [Suspect]
     Indication: RENAL CANCER
     Dosage: 800MG PER DAY
     Route: 048
     Dates: start: 20110218, end: 20110726
  10. VITAMIN D [Concomitant]

REACTIONS (1)
  - RENAL CANCER [None]
